FAERS Safety Report 25341630 (Version 4)
Quarter: 2025Q3

REPORT INFORMATION
  Report Type: Report from Study
  Country: CO (occurrence: CO)
  Receive Date: 20250521
  Receipt Date: 20250704
  Transmission Date: 20251020
  Serious: Yes (Other)
  Sender: TAKEDA
  Company Number: CO-TAKEDA-2025TUS047560

PATIENT
  Age: 12 Year
  Sex: Male
  Weight: 45.8 kg

DRUGS (8)
  1. ADYNOVATE [Suspect]
     Active Substance: ANTIHEMOPHILIC FACTOR, HUMAN RECOMBINANT
     Indication: Factor VIII deficiency
     Dosage: 2500 INTERNATIONAL UNIT, Q72H
     Dates: start: 20191101
  2. ADYNOVATE [Suspect]
     Active Substance: ANTIHEMOPHILIC FACTOR, HUMAN RECOMBINANT
     Indication: Prophylaxis
  3. ADYNOVATE [Suspect]
     Active Substance: ANTIHEMOPHILIC FACTOR, HUMAN RECOMBINANT
     Indication: Haemarthrosis
     Dosage: UNK UNK, Q72H
     Dates: start: 201911
  4. ADYNOVATE [Suspect]
     Active Substance: ANTIHEMOPHILIC FACTOR, HUMAN RECOMBINANT
  5. ADYNOVATE [Suspect]
     Active Substance: ANTIHEMOPHILIC FACTOR, HUMAN RECOMBINANT
     Dosage: 3000 INTERNATIONAL UNIT, Q72H
  6. ADYNOVATE [Suspect]
     Active Substance: ANTIHEMOPHILIC FACTOR, HUMAN RECOMBINANT
  7. ADYNOVATE [Suspect]
     Active Substance: ANTIHEMOPHILIC FACTOR, HUMAN RECOMBINANT
     Dosage: 3000 INTERNATIONAL UNIT, Q72H
     Dates: start: 20250514
  8. ADVATE [Suspect]
     Active Substance: ANTIHEMOPHILIC FACTOR, HUMAN RECOMBINANT
     Indication: Factor VIII deficiency

REACTIONS (16)
  - Traumatic haematoma [Unknown]
  - Haemophilic arthropathy [Unknown]
  - Haemarthrosis [Recovered/Resolved]
  - Traumatic haemorrhage [Recovered/Resolved]
  - Repetitive strain injury [Unknown]
  - Feeling hot [Unknown]
  - Arthritis [Unknown]
  - Attention deficit hyperactivity disorder [Unknown]
  - Arthralgia [Unknown]
  - Pes anserinus syndrome [Unknown]
  - Fatigue [Unknown]
  - Musculoskeletal discomfort [Unknown]
  - Pain [Unknown]
  - Pain in extremity [Unknown]
  - Mobility decreased [Unknown]
  - Injury [Unknown]

NARRATIVE: CASE EVENT DATE: 20250402
